FAERS Safety Report 18901499 (Version 1)
Quarter: 2021Q1

REPORT INFORMATION
  Report Type: Spontaneous
  Country: US (occurrence: US)
  Receive Date: 20210216
  Receipt Date: 20210216
  Transmission Date: 20210420
  Serious: No
  Sender: FDA-Public Use
  Company Number: US-PFIZER INC-2021040054

PATIENT
  Age: 63 Year

DRUGS (2)
  1. ARTHROTEC [Suspect]
     Active Substance: DICLOFENAC SODIUM\MISOPROSTOL
     Indication: PAIN
     Dosage: 100 MG, DAILY (I TAKE TWO 50 MG^S A DAY)
  2. ARTHROTEC [Suspect]
     Active Substance: DICLOFENAC SODIUM\MISOPROSTOL
     Indication: ARTHRITIS
     Dosage: (50?0.2 MG), 2X/DAY
     Route: 048

REACTIONS (3)
  - Therapeutic product effect incomplete [Unknown]
  - Arthritis [Unknown]
  - Movement disorder [Unknown]
